FAERS Safety Report 4285438-8 (Version None)
Quarter: 2004Q1

REPORT INFORMATION
  Report Type: 
  Country: None (occurrence: None)
  Receive Date: 20040202
  Receipt Date: 20040122
  Transmission Date: 20041129
  Serious: Yes (Disabling)
  Sender: FDA-Public Use
  Company Number: GRP03000187

PATIENT
  Age: 66 Year
  Sex: Male
  Weight: 95 kg

DRUGS (4)
  1. ACTONEL [Suspect]
     Indication: OSTEITIS DEFORMANS
     Dosage: 30 MG, EVERY 2 DAY, ORAL
     Route: 048
     Dates: start: 20030130, end: 20031114
  2. NORVASC [Concomitant]
  3. RAMIPRIL [Concomitant]
  4. ALAN (TAMSULOSIN HYDROCHLORIDE) [Concomitant]

REACTIONS (6)
  - BLOOD ALKALINE PHOSPHATASE INCREASED [None]
  - FOCAL NODULAR HYPERPLASIA [None]
  - HYPOACUSIS [None]
  - MACULOPATHY [None]
  - TINNITUS [None]
  - VISUAL DISTURBANCE [None]
